FAERS Safety Report 7122584-5 (Version None)
Quarter: 2010Q4

REPORT INFORMATION
  Report Type: 
  Country: None (occurrence: None)
  Receive Date: 20101112
  Receipt Date: 20101109
  Transmission Date: 20110411
  Serious: Yes (Death)
  Sender: FDA-Public Use
  Company Number: 2010SP059210

PATIENT
  Sex: Female

DRUGS (2)
  1. NOXAFIL [Suspect]
     Indication: PROPHYLAXIS
  2. CHEMOTHERAPY [Concomitant]

REACTIONS (1)
  - FUNGAL SEPSIS [None]
